FAERS Safety Report 4746040-4 (Version None)
Quarter: 2005Q3

REPORT INFORMATION
  Report Type: 
  Country: None (occurrence: None)
  Receive Date: 20050816
  Receipt Date: 20050801
  Transmission Date: 20060218
  Serious: Yes (Hospitalization, Disabling)
  Sender: FDA-Public Use
  Company Number: DE-JNJFOC-20050507132

PATIENT
  Sex: Female
  Weight: 71 kg

DRUGS (2)
  1. GALANTAMINE ER [Suspect]
     Route: 048
  2. GALANTAMINE ER [Suspect]
     Route: 048

REACTIONS (6)
  - ANGIOPATHY [None]
  - BLOOD PRESSURE INCREASED [None]
  - FALL [None]
  - JOINT DISLOCATION [None]
  - QRS AXIS ABNORMAL [None]
  - SYNCOPE [None]
